FAERS Safety Report 9781195 (Version 1)
Quarter: 2013Q4

REPORT INFORMATION
  Report Type: Spontaneous
  Country: US (occurrence: None)
  Receive Date: 20131220
  Receipt Date: 20131220
  Transmission Date: 20140711
  Serious: Yes (Disabling, Other)
  Sender: FDA-Public Use
  Company Number: PIN-2013-00066

PATIENT
  Age: 31 Year
  Sex: Male

DRUGS (7)
  1. PHOTOFRIN [Suspect]
     Indication: BASAL CELL CARCINOMA
     Dates: start: 20130929, end: 20130929
  2. PHOTOFRIN [Suspect]
     Indication: PHOTODYNAMIC THERAPY
     Dates: start: 20130929, end: 20130929
  3. ADCAL D-3 (CALCIUM CARBONATE, CHOLECALCIFEROL CONCENTRATE, CHOLECALCIFEROL, DESTAB CALCIUM CARBONATE 90 SE) [Concomitant]
  4. FELODIPINE [Concomitant]
  5. LEVOTHYROXINE SODIUM (LEVOTHYROXINE, THYROXINE) [Concomitant]
  6. LISINOPRIL [Concomitant]
  7. TEGRETOL (CARBMAZEPINE) [Concomitant]

REACTIONS (5)
  - Joint swelling [None]
  - Local swelling [None]
  - Body temperature increased [None]
  - Grand mal convulsion [None]
  - Off label use [None]
